FAERS Safety Report 15048918 (Version 2)
Quarter: 2018Q2

REPORT INFORMATION
  Report Type: Spontaneous
  Country: US (occurrence: US)
  Receive Date: 20180622
  Receipt Date: 20180628
  Transmission Date: 20180711
  Serious: No
  Sender: FDA-Public Use
  Company Number: US-009507513-1806USA008868

PATIENT
  Sex: Female

DRUGS (8)
  1. PHENTERMINE. [Concomitant]
     Active Substance: PHENTERMINE
  2. FOLLISTIM AQ [Suspect]
     Active Substance: FOLLITROPIN
     Indication: INFERTILITY FEMALE
     Dosage: 600IU/0.72ML, QD
     Route: 058
     Dates: start: 201806
  3. CRINONE [Concomitant]
     Active Substance: PROGESTERONE
  4. GANIRELIX ACETATE INJECTION [Suspect]
     Active Substance: GANIRELIX ACETATE
     Indication: INFERTILITY FEMALE
     Dosage: UNK UNK, QD
     Route: 058
     Dates: start: 201806
  5. ESTRADIOL. [Concomitant]
     Active Substance: ESTRADIOL
  6. PROGESTERONE. [Concomitant]
     Active Substance: PROGESTERONE
  7. DOXYCYCLINE HYCLATE. [Concomitant]
     Active Substance: DOXYCYCLINE HYCLATE
  8. METFORMIN [Concomitant]
     Active Substance: METFORMIN HYDROCHLORIDE

REACTIONS (1)
  - Injection site pain [Unknown]
